FAERS Safety Report 10195789 (Version 2)
Quarter: 2014Q2

REPORT INFORMATION
  Report Type: Spontaneous
  Country: US (occurrence: None)
  Receive Date: 20140522
  Receipt Date: 20140624
  Transmission Date: 20141212
  Serious: Yes (Other)
  Sender: FDA-Public Use
  Company Number: AUR-APL-2014-05905

PATIENT
  Age: 12 Year
  Sex: Male

DRUGS (6)
  1. STAVUDINE [Suspect]
     Indication: ANTIRETROVIRAL THERAPY
     Dosage: UNKNOWN
  2. LAMIVUDINE (LAMIVUDINE) [Suspect]
     Indication: ANTIRETROVIRAL THERAPY
  3. EFAVIRENZ (EFAVIRENZ) [Concomitant]
  4. BLEOMYCIN (BLEOMYCIN) [Concomitant]
  5. PACLITAXEL (PACLITAXEL) [Concomitant]
  6. VINCRISTINE (VINCRISTINE) [Concomitant]

REACTIONS (7)
  - Neuropathy peripheral [None]
  - Kaposi^s sarcoma [None]
  - Skin lesion [None]
  - Pericardial effusion [None]
  - Immune reconstitution inflammatory syndrome [None]
  - Lung disorder [None]
  - Respiratory disorder [None]
